FAERS Safety Report 24125964 (Version 3)
Quarter: 2024Q3

REPORT INFORMATION
  Report Type: Spontaneous
  Country: US (occurrence: US)
  Receive Date: 20240723
  Receipt Date: 20240902
  Transmission Date: 20241017
  Serious: Yes (Death, Hospitalization, Other)
  Sender: TEVA
  Company Number: US-TEVA-VS-3219453

PATIENT
  Age: 67 Year
  Sex: Male

DRUGS (4)
  1. LEVOFLOXACIN [Suspect]
     Active Substance: LEVOFLOXACIN
     Indication: Legionella infection
     Route: 065
  2. CEFTRIAXONE [Concomitant]
     Active Substance: CEFTRIAXONE\CEFTRIAXONE SODIUM
     Indication: Pneumonia pneumococcal
     Route: 065
  3. MICAFUNGIN [Concomitant]
     Active Substance: MICAFUNGIN SODIUM
     Indication: Pneumonia pneumococcal
     Route: 065
  4. ADALIMUMAB [Suspect]
     Active Substance: ADALIMUMAB
     Indication: Psoriasis
     Dosage: THREE DOSES WITHIN ONE WEEK RATHER THAN ONE DOSE EVERY TWO WEEKS
     Route: 065

REACTIONS (6)
  - Immunosuppression [Fatal]
  - Respiratory failure [Fatal]
  - Legionella infection [Fatal]
  - Pneumonia necrotising [Fatal]
  - Wrong dose [Unknown]
  - Drug ineffective [Fatal]
